FAERS Safety Report 7134269-X (Version None)
Quarter: 2010Q4

REPORT INFORMATION
  Report Type: 
  Country: None (occurrence: None)
  Receive Date: 20101203
  Receipt Date: 20101119
  Transmission Date: 20110411
  Serious: Yes (Hospitalization)
  Sender: FDA-Public Use
  Company Number: IT-ELI_LILLY_AND_COMPANY-IT201011005562

PATIENT
  Sex: Male

DRUGS (10)
  1. ALIMTA [Suspect]
     Indication: LUNG ADENOCARCINOMA
     Dosage: 500 MG/CYCLE
     Route: 042
     Dates: start: 20100908
  2. CISPLATIN [Concomitant]
     Indication: LUNG ADENOCARCINOMA
     Dosage: 50MG/CYCLE
     Route: 042
     Dates: start: 20100908
  3. PROVISACOR [Concomitant]
     Dosage: 10 MG, UNK
  4. TAMSULOSIN HYDROCHLORIDE [Concomitant]
  5. MODURETIC 5-50 [Concomitant]
  6. GLUCOPHAGE [Concomitant]
  7. THEOPHYLLINE [Concomitant]
     Dosage: 400 MG, UNK
  8. URSODIOL [Concomitant]
     Dosage: 900 MG, UNK
  9. ASCRIPTIN [Concomitant]
  10. LANSOX [Concomitant]

REACTIONS (4)
  - ANAEMIA [None]
  - EPISTAXIS [None]
  - SYNCOPE [None]
  - THROMBOCYTOPENIA [None]
